FAERS Safety Report 5679504-X (Version None)
Quarter: 2008Q1

REPORT INFORMATION
  Report Type: 
  Country: None (occurrence: None)
  Receive Date: 20080325
  Receipt Date: 20080303
  Transmission Date: 20080703
  Serious: No
  Sender: FDA-Public Use
  Company Number: US-BOEHRINGER INGELHEIM GMBH, GERMANY-2008-BP-03259BP

PATIENT
  Age: 83 Year
  Sex: Male

DRUGS (10)
  1. FLOMAX [Suspect]
     Indication: BENIGN PROSTATIC HYPERPLASIA
     Route: 048
  2. PRAVASTATIN [Concomitant]
     Route: 048
  3. HYZAAR [Concomitant]
  4. FINASTERIDE [Concomitant]
  5. ISOSORBIDE DINITRATE [Concomitant]
  6. RANITIDINE [Concomitant]
  7. PIROXICAM [Concomitant]
  8. LYRICA [Concomitant]
  9. ASPIRIN [Concomitant]
  10. AVODART [Concomitant]

REACTIONS (1)
  - RHINORRHOEA [None]
